FAERS Safety Report 4807702-3 (Version None)
Quarter: 2005Q4

REPORT INFORMATION
  Report Type: 
  Country: None (occurrence: None)
  Receive Date: 20051024
  Receipt Date: 20041018
  Transmission Date: 20060501
  Serious: Yes (Other)
  Sender: FDA-Public Use
  Company Number: US-JNJFOC-20041100955

PATIENT
  Sex: Female

DRUGS (1)
  1. MOTRIN [Suspect]
     Indication: DRUG USE FOR UNKNOWN INDICATION
     Dosage: REGULAR DOSES

REACTIONS (1)
  - NEPHROTIC SYNDROME [None]
